FAERS Safety Report 25194944 (Version 1)
Quarter: 2025Q2

REPORT INFORMATION
  Report Type: Report from Study
  Country: US (occurrence: US)
  Receive Date: 20250415
  Receipt Date: 20250415
  Transmission Date: 20250716
  Serious: Yes (Other)
  Sender: ABBVIE
  Company Number: US-ABBVIE-6226508

PATIENT
  Age: 66 Year
  Sex: Male

DRUGS (23)
  1. VENCLEXTA [Suspect]
     Active Substance: VENETOCLAX
     Indication: Chronic lymphocytic leukaemia
     Route: 048
  2. RITUXIMAB [Suspect]
     Active Substance: RITUXIMAB
     Indication: Chronic lymphocytic leukaemia
     Route: 065
  3. CLOBETASOL [Concomitant]
     Active Substance: CLOBETASOL
     Indication: Product used for unknown indication
  4. SULFAMETHOXAZOLE\TRIMETHOPRIM [Concomitant]
     Active Substance: SULFAMETHOXAZOLE\TRIMETHOPRIM
     Indication: Product used for unknown indication
  5. VALACYCLOVIR [Concomitant]
     Active Substance: VALACYCLOVIR HYDROCHLORIDE
     Indication: Product used for unknown indication
  6. COVID-19 vaccine [Concomitant]
     Indication: Product used for unknown indication
     Dates: start: 20211228
  7. COVID-19 vaccine [Concomitant]
     Indication: Product used for unknown indication
     Dates: start: 20220614
  8. COVID-19 vaccine [Concomitant]
     Indication: Product used for unknown indication
     Dates: start: 20210304
  9. COVID-19 vaccine [Concomitant]
     Indication: Product used for unknown indication
     Dates: start: 20221129
  10. Diphtheria, Tetanus, and acellular Pertussis vaccine [Concomitant]
     Indication: Product used for unknown indication
     Dates: start: 20031117
  11. Poliovirus vaccine, inactivated [Concomitant]
     Indication: Product used for unknown indication
     Dates: start: 20031117
  12. INFLUENZA VIRUS VACCINE [Concomitant]
     Active Substance: INFLUENZA VIRUS VACCINE
     Indication: Product used for unknown indication
     Dates: start: 20221129
  13. INFLUENZA VIRUS VACCINE [Concomitant]
     Active Substance: INFLUENZA VIRUS VACCINE
     Indication: Product used for unknown indication
     Dates: start: 20211228
  14. INFLUENZA VIRUS VACCINE [Concomitant]
     Active Substance: INFLUENZA VIRUS VACCINE
     Indication: Product used for unknown indication
     Dates: start: 20151013
  15. INFLUENZA VIRUS VACCINE [Concomitant]
     Active Substance: INFLUENZA VIRUS VACCINE
     Indication: Product used for unknown indication
     Dates: start: 20140916
  16. INFLUENZA VIRUS VACCINE [Concomitant]
     Active Substance: INFLUENZA VIRUS VACCINE
     Indication: Product used for unknown indication
     Dates: start: 20231128
  17. INFLUENZA VIRUS VACCINE [Concomitant]
     Active Substance: INFLUENZA VIRUS VACCINE
     Indication: Product used for unknown indication
     Dates: start: 20200224
  18. INFLUENZA VIRUS VACCINE [Concomitant]
     Active Substance: INFLUENZA VIRUS VACCINE
     Indication: Product used for unknown indication
     Dates: start: 20181001
  19. TETANUS TOXOID ADSORBED (VACCINE) [Concomitant]
     Active Substance: CLOSTRIDIUM TETANI TOXOID ANTIGEN (FORMALDEHYDE INACTIVATED)
     Indication: Product used for unknown indication
     Dates: start: 20130903
  20. TETANUS TOXOID ADSORBED (VACCINE) [Concomitant]
     Active Substance: CLOSTRIDIUM TETANI TOXOID ANTIGEN (FORMALDEHYDE INACTIVATED)
     Indication: Product used for unknown indication
     Dates: start: 19990122
  21. MEASLES-MUMPS-RUBELLA VIRUS VACCINE [Concomitant]
     Active Substance: MEASLES-MUMPS-RUBELLA VIRUS VACCINE
     Indication: Product used for unknown indication
     Dates: start: 20031117
  22. PNEUMOCOCCAL VACCINE POLYVALENT [Concomitant]
     Active Substance: PNEUMOCOCCAL VACCINE POLYVALENT
     Indication: Product used for unknown indication
     Dates: start: 20160913
  23. PNEUMOCOCCAL VACCINE POLYVALENT [Concomitant]
     Active Substance: PNEUMOCOCCAL VACCINE POLYVALENT
     Indication: Product used for unknown indication
     Dates: start: 20141014

REACTIONS (12)
  - Marginal zone lymphoma [Unknown]
  - Pleural effusion [Unknown]
  - Gastrooesophageal reflux disease [Unknown]
  - Thyroid mass [Unknown]
  - Goitre [Unknown]
  - Lymphadenopathy [Unknown]
  - Congenital white blood cell disorder [Unknown]
  - Prostatomegaly [Unknown]
  - Hyperviscosity syndrome [Unknown]
  - Anxiety [Unknown]
  - Drug hypersensitivity [Unknown]
  - Blood disorder [Unknown]
